FAERS Safety Report 20792146 (Version 5)
Quarter: 2022Q3

REPORT INFORMATION
  Report Type: Spontaneous
  Country: FR (occurrence: FR)
  Receive Date: 20220505
  Receipt Date: 20220930
  Transmission Date: 20221027
  Serious: Yes (Hospitalization, Other)
  Sender: FDA-Public Use
  Company Number: FR-BAYER-2022A064659

PATIENT
  Age: 66 Year
  Sex: Female

DRUGS (17)
  1. VITRAKVI [Suspect]
     Active Substance: LAROTRECTINIB
     Indication: Lung adenocarcinoma
     Dosage: 100 MG, BID
     Dates: start: 20220304, end: 20220410
  2. VITRAKVI [Suspect]
     Active Substance: LAROTRECTINIB
     Indication: Lung adenocarcinoma
     Dosage: 100 MG, BID
     Dates: start: 20220427, end: 20220427
  3. ALPRAZOLAM [Concomitant]
     Active Substance: ALPRAZOLAM
     Dosage: 1 TABLET IN EVENING AS NEEDED
     Route: 048
     Dates: start: 20220408, end: 20220409
  4. ALPRAZOLAM [Concomitant]
     Active Substance: ALPRAZOLAM
     Dosage: 1 DF, PRN
     Route: 048
     Dates: start: 20220411, end: 20220411
  5. ATENOLOL [Concomitant]
     Active Substance: ATENOLOL
     Dosage: 0.5 TO 1 TABLET PER DAY AS NEEDED
     Route: 048
     Dates: start: 20220421
  6. EXFORGE [Concomitant]
     Active Substance: AMLODIPINE BESYLATE\VALSARTAN
     Dosage: 10MG/160MG, 1 TABLET IN MORNING
     Route: 048
     Dates: start: 20220408, end: 20220409
  7. EXFORGE [Concomitant]
     Active Substance: AMLODIPINE BESYLATE\VALSARTAN
     Dosage: 10MG/160MG, 1 TABLET IN MORNING
     Route: 048
     Dates: start: 20220420
  8. LANSOPRAZOLE [Concomitant]
     Active Substance: LANSOPRAZOLE
     Dosage: 1 TABLET IN EVENING
     Route: 048
     Dates: start: 20220420
  9. MINERAL OIL [Concomitant]
     Active Substance: MINERAL OIL
     Dosage: 11.734G/15G, 1 DOSE AT MIDDAY
     Route: 048
     Dates: start: 20220422
  10. POLYETHYLENE GLYCOL\POTASSIUM CHLORIDE\SODIUM BICARBONATE\SODIUM CHLOR [Concomitant]
     Active Substance: POLYETHYLENE GLYCOL\POTASSIUM CHLORIDE\SODIUM BICARBONATE\SODIUM CHLORIDE
     Dosage: 2 SACHETS MORNING AND MIDDAY AS NEEDED
     Route: 048
     Dates: start: 20220422
  11. ROSUVASTATIN [Concomitant]
     Active Substance: ROSUVASTATIN
     Dosage: 1 DF, QD
     Route: 048
     Dates: start: 20220421
  12. OXAZEPAM [Concomitant]
     Active Substance: OXAZEPAM
     Dosage: 1 DF, TID
     Route: 048
     Dates: start: 20220420
  13. POTASSIUM CHLORIDE [Concomitant]
     Active Substance: POTASSIUM CHLORIDE
     Dosage: UNK
     Route: 042
     Dates: start: 20220421, end: 20220423
  14. FUROSEMIDE [Concomitant]
     Active Substance: FUROSEMIDE
     Dosage: 1 TO 3 AMPOULES AS NEEDED
     Route: 042
     Dates: start: 20220410, end: 20220410
  15. FUROSEMIDE [Concomitant]
     Active Substance: FUROSEMIDE
     Dosage: 100 MG, ONCE
     Route: 042
     Dates: start: 20220411, end: 20220411
  16. FOLIC ACID [Concomitant]
     Active Substance: FOLIC ACID
     Dosage: 1 TABLET IN MORNING
  17. PANTOPRAZOLE [Concomitant]
     Active Substance: PANTOPRAZOLE
     Dosage: 1 TABLET IN EVENING
     Route: 048

REACTIONS (21)
  - Sepsis [None]
  - Shock haemorrhagic [None]
  - Multiple organ dysfunction syndrome [Recovering/Resolving]
  - Haematoma muscle [None]
  - Vitamin K deficiency [None]
  - Jaundice [None]
  - Cell death [None]
  - Cholestasis [None]
  - Anaemia [None]
  - Agitation [None]
  - Persecutory delusion [None]
  - Hepatitis [None]
  - Hepatotoxicity [None]
  - Nephropathy toxic [None]
  - Renal failure [None]
  - Fall [None]
  - Respiratory tract infection [None]
  - Pyrexia [None]
  - Hypotension [None]
  - Oxygen saturation decreased [None]
  - Blood bilirubin increased [None]

NARRATIVE: CASE EVENT DATE: 20220401
